FAERS Safety Report 16141978 (Version 3)
Quarter: 2019Q3

REPORT INFORMATION
  Report Type: Report from Study
  Country: US (occurrence: US)
  Receive Date: 20190401
  Receipt Date: 20190930
  Transmission Date: 20191004
  Serious: No
  Sender: FDA-Public Use
  Company Number: US-CLOVIS ONCOLOGY-CLO-2019-000319

PATIENT
  Sex: Female

DRUGS (13)
  1. RUBRACA [Suspect]
     Active Substance: RUCAPARIB CAMSYLATE
     Dosage: 600 MG, BID
     Route: 048
     Dates: start: 20190206, end: 20190622
  2. PEPCID [Concomitant]
     Active Substance: FAMOTIDINE
     Indication: DYSPEPSIA
  3. COMPAZINE                          /00013302/ [Concomitant]
     Active Substance: PROCHLORPERAZINE EDISYLATE
     Indication: PRODUCT USED FOR UNKNOWN INDICATION
  4. ASPIRIN                            /00002701/ [Concomitant]
     Active Substance: ASPIRIN
     Indication: PRODUCT USED FOR UNKNOWN INDICATION
  5. RUBRACA [Suspect]
     Active Substance: RUCAPARIB CAMSYLATE
     Indication: OVARIAN CANCER
     Dosage: 300 MG, BID
     Route: 048
     Dates: start: 20190206
  6. RUBRACA [Suspect]
     Active Substance: RUCAPARIB CAMSYLATE
     Dosage: 600 MG, BID
     Route: 048
     Dates: start: 20190206, end: 2019
  7. LEVOTHYROXINE. [Concomitant]
     Active Substance: LEVOTHYROXINE
     Indication: PRODUCT USED FOR UNKNOWN INDICATION
  8. RUBRACA [Suspect]
     Active Substance: RUCAPARIB CAMSYLATE
     Dosage: 600 MG, BID
     Route: 048
     Dates: start: 2019
  9. RUBRACA [Suspect]
     Active Substance: RUCAPARIB CAMSYLATE
     Dosage: 600 MG, BID
     Route: 048
     Dates: start: 201812, end: 201908
  10. HYDROCODONE [Concomitant]
     Active Substance: HYDROCODONE
     Indication: PRODUCT USED FOR UNKNOWN INDICATION
  11. ONDANSETRON [Concomitant]
     Active Substance: ONDANSETRON
     Indication: PRODUCT USED FOR UNKNOWN INDICATION
  12. RUBRACA [Suspect]
     Active Substance: RUCAPARIB CAMSYLATE
     Dosage: 500 MG, BID
     Route: 048
     Dates: start: 20190819
  13. SONATA [Concomitant]
     Active Substance: ZALEPLON
     Indication: PRODUCT USED FOR UNKNOWN INDICATION

REACTIONS (12)
  - Myalgia [Unknown]
  - Hypersensitivity [Unknown]
  - Feeling abnormal [Recovered/Resolved]
  - Dyspepsia [Not Recovered/Not Resolved]
  - Chest pain [Not Recovered/Not Resolved]
  - Pain in extremity [Unknown]
  - Product dose omission [Unknown]
  - Blood cholesterol increased [Not Recovered/Not Resolved]
  - Pruritus [Unknown]
  - Extra dose administered [Unknown]
  - Hepatotoxicity [Not Recovered/Not Resolved]
  - Nausea [Not Recovered/Not Resolved]

NARRATIVE: CASE EVENT DATE: 2019
